FAERS Safety Report 8573971-X (Version None)
Quarter: 2012Q3

REPORT INFORMATION
  Report Type: 
  Country: None (occurrence: None)
  Receive Date: 20120806
  Receipt Date: 20100706
  Transmission Date: 20120928
  Serious: Yes (Death, Other)
  Sender: FDA-Public Use
  Company Number: DE-CELGENEUS-062-21880-12060411

PATIENT
  Age: 72 Year
  Sex: Male

DRUGS (7)
  1. DEXAMETHASONE [Suspect]
     Indication: MULTIPLE MYELOMA
     Dosage: 40 MILLIGRAM
     Route: 065
     Dates: start: 20090216, end: 20090802
  2. DEXAMETHASONE [Suspect]
     Route: 065
     Dates: start: 20091103, end: 20100108
  3. THALIDOMIDE [Suspect]
     Indication: MULTIPLE MYELOMA
     Dates: start: 20091103, end: 20100108
  4. REVLIMID [Suspect]
     Indication: MULTIPLE MYELOMA
     Dosage: 25 MILLIGRAM
     Route: 048
     Dates: start: 20090216, end: 20090802
  5. DEXAMETHASONE [Suspect]
     Route: 065
     Dates: start: 20100202, end: 20100303
  6. IBANDRONIC ACID [Concomitant]
     Route: 065
  7. ASPIRIN [Concomitant]
     Indication: ANTICOAGULANT THERAPY
     Route: 065

REACTIONS (9)
  - MULTIPLE MYELOMA [None]
  - LEUKOPENIA [None]
  - PAIN [None]
  - DECREASED APPETITE [None]
  - ANAEMIA [None]
  - GRANULOCYTOPENIA [None]
  - BLOOD CREATININE INCREASED [None]
  - FATIGUE [None]
  - CONSTIPATION [None]
